FAERS Safety Report 13758471 (Version 1)
Quarter: 2017Q3

REPORT INFORMATION
  Report Type: Spontaneous
  Country: US (occurrence: US)
  Receive Date: 20170715
  Receipt Date: 20170715
  Transmission Date: 20171127
  Serious: Yes (Hospitalization)
  Sender: FDA-Public Use
  Company Number: None

PATIENT
  Age: 51 Year
  Sex: Male
  Weight: 97.98 kg

DRUGS (1)
  1. 5-FLUOROURACIL (5-FU) [Suspect]
     Active Substance: FLUOROURACIL
     Dates: end: 20160102

REACTIONS (3)
  - Upper respiratory tract infection [None]
  - Pneumocystis jirovecii pneumonia [None]
  - Pneumonia bacterial [None]

NARRATIVE: CASE EVENT DATE: 20161115
